FAERS Safety Report 18793936 (Version 1)
Quarter: 2021Q1

REPORT INFORMATION
  Report Type: Spontaneous
  Country: DE (occurrence: DE)
  Receive Date: 20210127
  Receipt Date: 20210127
  Transmission Date: 20210419
  Serious: Yes (Life-Threatening, Other)
  Sender: FDA-Public Use
  Company Number: DE-TEVA-2021-DE-1866002

PATIENT
  Age: 79 Year
  Sex: Male
  Weight: 70 kg

DRUGS (1)
  1. TAMSULOSIN MODIFIED?RELEASE CAPSULE, HARD [Suspect]
     Active Substance: TAMSULOSIN
     Indication: PROSTATE INDURATION
     Dosage: .4 MILLIGRAM DAILY;
     Dates: start: 2018

REACTIONS (4)
  - Hypotonia [Unknown]
  - Heart rate increased [Recovered/Resolved]
  - Cardiac fibrillation [Recovered/Resolved]
  - Cardiovascular disorder [Recovered/Resolved]

NARRATIVE: CASE EVENT DATE: 20201213
